FAERS Safety Report 9208738 (Version 2)
Quarter: 2013Q2

REPORT INFORMATION
  Report Type: Spontaneous
  Country: US (occurrence: US)
  Receive Date: 20130404
  Receipt Date: 20130523
  Transmission Date: 20140414
  Serious: Yes (Other)
  Sender: FDA-Public Use
  Company Number: US-PFIZER INC-2013105934

PATIENT
  Age: 43 Year
  Sex: Female
  Weight: 99.77 kg

DRUGS (4)
  1. LYRICA [Suspect]
     Indication: FIBROMYALGIA
     Dosage: 50 MG, UNK
     Route: 048
     Dates: start: 201303, end: 201303
  2. LYRICA [Suspect]
     Dosage: 75 MG, UNK
     Route: 048
     Dates: start: 201303, end: 201303
  3. LYRICA [Suspect]
     Dosage: 50 MG, UNK
     Route: 048
     Dates: start: 201303, end: 20130401
  4. TIZANIDINE [Concomitant]
     Dosage: UNK, AS NEEDED

REACTIONS (7)
  - Suicidal ideation [Unknown]
  - Depression [Unknown]
  - Dizziness [Unknown]
  - Vision blurred [Unknown]
  - Drug ineffective [Unknown]
  - Nausea [Unknown]
  - Abdominal pain upper [Unknown]
